FAERS Safety Report 16070887 (Version 4)
Quarter: 2019Q2

REPORT INFORMATION
  Report Type: Report from Study
  Country: CO (occurrence: CO)
  Receive Date: 20190314
  Receipt Date: 20190513
  Transmission Date: 20190711
  Serious: Yes (Hospitalization, Other)
  Sender: FDA-Public Use
  Company Number: CO-ASTELLAS-2018US046462

PATIENT
  Age: 27 Year
  Sex: Female

DRUGS (4)
  1. MYCOPHENOLATE [Concomitant]
     Active Substance: MYCOPHENOLIC ACID
     Indication: PRODUCT USED FOR UNKNOWN INDICATION
     Route: 048
     Dates: start: 201206
  2. LOSARTAN. [Concomitant]
     Active Substance: LOSARTAN
     Indication: PRODUCT USED FOR UNKNOWN INDICATION
     Dosage: UNK UNK, UNKNOWN FREQ.
     Route: 065
     Dates: start: 2012, end: 201904
  3. TACROLIMUS. [Suspect]
     Active Substance: TACROLIMUS
     Indication: RENAL TRANSPLANT
     Route: 048
     Dates: start: 20120625
  4. METFORMIN [Concomitant]
     Active Substance: METFORMIN HYDROCHLORIDE
     Indication: PRODUCT USED FOR UNKNOWN INDICATION
     Dosage: UNK UNK, UNKNOWN FREQ.
     Route: 065
     Dates: start: 2012, end: 201904

REACTIONS (14)
  - Abdominal pain upper [Not Recovered/Not Resolved]
  - General physical health deterioration [Recovering/Resolving]
  - Psychiatric symptom [Unknown]
  - Diarrhoea [Recovering/Resolving]
  - Headache [Not Recovered/Not Resolved]
  - Fibromyalgia [Unknown]
  - Abdominal pain [Recovering/Resolving]
  - Migraine [Recovered/Resolved]
  - Vomiting [Recovered/Resolved]
  - Migraine [Unknown]
  - Depression [Not Recovered/Not Resolved]
  - Herpes virus infection [Not Recovered/Not Resolved]
  - Diarrhoea [Recovered/Resolved]
  - Osteoarthritis [Unknown]

NARRATIVE: CASE EVENT DATE: 20120625
